FAERS Safety Report 16749386 (Version 1)
Quarter: 2019Q3

REPORT INFORMATION
  Report Type: Spontaneous
  Country: US (occurrence: US)
  Receive Date: 20190828
  Receipt Date: 20190828
  Transmission Date: 20191005
  Serious: No
  Sender: FDA-Public Use
  Company Number: US-BRISTOL-MYERS SQUIBB COMPANY-BMS-2019-084381

PATIENT
  Sex: Female

DRUGS (1)
  1. ORENCIA [Suspect]
     Active Substance: ABATACEPT
     Indication: RHEUMATOID ARTHRITIS
     Dosage: 1
     Route: 065
     Dates: start: 201908

REACTIONS (8)
  - Cough [Unknown]
  - Hypoaesthesia [Unknown]
  - Headache [Unknown]
  - Abdominal discomfort [Unknown]
  - Chills [Unknown]
  - Paraesthesia [Unknown]
  - Nervousness [Unknown]
  - Insomnia [Unknown]
